FAERS Safety Report 21238643 (Version 1)
Quarter: 2022Q3

REPORT INFORMATION
  Report Type: Spontaneous
  Country: SI (occurrence: SI)
  Receive Date: 20220822
  Receipt Date: 20220822
  Transmission Date: 20221027
  Serious: Yes (Hospitalization, Disabling, Other)
  Sender: FDA-Public Use
  Company Number: None

PATIENT
  Age: 63 Year
  Sex: Male

DRUGS (12)
  1. OFEV [Suspect]
     Active Substance: NINTEDANIB
     Indication: Hypersensitivity pneumonitis
     Route: 048
     Dates: start: 20220425, end: 20220603
  2. OFEV [Suspect]
     Active Substance: NINTEDANIB
     Indication: Pulmonary fibrosis
  3. Prenewel 8 MG/2,5 MG [Concomitant]
     Indication: Product used for unknown indication
  4. Algominal 500 MG [Concomitant]
     Indication: Product used for unknown indication
     Dates: start: 20220528
  5. Alopurinol Sandoz 300 MG [Concomitant]
     Indication: Product used for unknown indication
  6. KAMIREN XL 4 MG [Concomitant]
     Indication: Product used for unknown indication
  7. Amoksiklav SOLVO 500 MG/125 MG [Concomitant]
     Indication: Product used for unknown indication
     Dates: start: 20220601
  8. ASPIRIN [Concomitant]
     Active Substance: ASPIRIN
     Indication: Product used for unknown indication
  9. Coupet 40 MG [Concomitant]
     Indication: Product used for unknown indication
  10. ACETAMINOPHEN [Concomitant]
     Active Substance: ACETAMINOPHEN
     Indication: Product used for unknown indication
     Dates: start: 20220528
  11. Byol 2,5 MG [Concomitant]
     Indication: Product used for unknown indication
  12. Tadol 50 MG [Concomitant]
     Indication: Product used for unknown indication
     Dates: start: 20220528

REACTIONS (2)
  - Ischaemic stroke [Unknown]
  - Encephalomalacia [Unknown]

NARRATIVE: CASE EVENT DATE: 20220603
